FAERS Safety Report 4695679-3 (Version None)
Quarter: 2005Q2

REPORT INFORMATION
  Report Type: 
  Country: None (occurrence: None)
  Receive Date: 20050616
  Receipt Date: 20050616
  Transmission Date: 20051028
  Serious: Yes (Other)
  Sender: FDA-Public Use
  Company Number: None

PATIENT
  Age: 81 Year
  Sex: Male
  Weight: 79.3795 kg

DRUGS (1)
  1. VYTORIN [Suspect]
     Indication: LIPIDS ABNORMAL
     Dosage: 1 TAB DAILY BY MOUTH
     Route: 048
     Dates: start: 20050321

REACTIONS (2)
  - DYSKINESIA [None]
  - MUSCLE SPASMS [None]
